FAERS Safety Report 13414341 (Version 1)
Quarter: 2017Q2

REPORT INFORMATION
  Report Type: Report from Study
  Country: US (occurrence: US)
  Receive Date: 20170406
  Receipt Date: 20170406
  Transmission Date: 20170830
  Serious: No
  Sender: FDA-Public Use
  Company Number: GXBR2017US001176

PATIENT
  Age: 11 Year
  Sex: Male
  Weight: 49.7 kg

DRUGS (3)
  1. ALBUTEROL. [Concomitant]
     Active Substance: ALBUTEROL
     Dosage: UNK DF, UNK
  2. VITAMIN D [Concomitant]
     Active Substance: CHOLECALCIFEROL
     Dosage: UNK DF, UNK
  3. OMNITROPE [Suspect]
     Active Substance: SOMATROPIN
     Indication: BODY HEIGHT BELOW NORMAL
     Dosage: 1.4 MG, QD
     Route: 058
     Dates: start: 201604

REACTIONS (2)
  - Migraine [Unknown]
  - Headache [Unknown]

NARRATIVE: CASE EVENT DATE: 201612
